FAERS Safety Report 6871649-1 (Version None)
Quarter: 2010Q3

REPORT INFORMATION
  Report Type: 
  Country: None (occurrence: None)
  Receive Date: 20100723
  Receipt Date: 20100714
  Transmission Date: 20110219
  Serious: Yes (Other)
  Sender: FDA-Public Use
  Company Number: US-JNJFOC-20100602770

PATIENT
  Age: 59 Year
  Sex: Female
  Weight: 74.39 kg

DRUGS (2)
  1. TYLENOL (CAPLET) [Suspect]
     Route: 048
  2. TYLENOL (CAPLET) [Suspect]
     Indication: ARTHRITIS
     Route: 048

REACTIONS (4)
  - BACTERIAL INFECTION [None]
  - EYE INFECTION BACTERIAL [None]
  - ORAL BACTERIAL INFECTION [None]
  - PRODUCT QUALITY ISSUE [None]
